FAERS Safety Report 8150302-0 (Version None)
Quarter: 2012Q1

REPORT INFORMATION
  Report Type: 
  Country: None (occurrence: None)
  Receive Date: 20120220
  Receipt Date: 20120207
  Transmission Date: 20120608
  Serious: Yes (Hospitalization, Other)
  Sender: FDA-Public Use
  Company Number: CA-ELI_LILLY_AND_COMPANY-CA201112007689

PATIENT
  Age: 82 Year
  Sex: Female

DRUGS (14)
  1. CALCIUM CARBONATE [Concomitant]
     Dosage: 500 MG, BID
  2. FORTEO [Suspect]
     Indication: OSTEOPOROSIS
     Dosage: 20 UG, QD
     Route: 058
     Dates: start: 20110217, end: 20120101
  3. VITAMIN D [Concomitant]
     Dosage: 40 DF, UNK
  4. VITAMIN B6 [Concomitant]
     Dosage: 50 MG, QD
  5. CALCIUM [Concomitant]
  6. FUROSEMIDE [Concomitant]
     Indication: VENOUS INSUFFICIENCY
     Dosage: 20 MG, QD
  7. PREDNISONE [Concomitant]
     Dosage: 5 MG, QD
  8. PLAQUENIL [Concomitant]
     Dosage: 200 MG, BID
  9. PREDNISONE [Concomitant]
     Dosage: 5 MG, BID
     Dates: start: 20120101
  10. PANTOLOC                           /01263202/ [Concomitant]
     Dosage: 40 MG, QD
  11. VITAMIN D2 [Concomitant]
     Dosage: 50000 IU, WEEKLY (1/W)
  12. METHOTREXATE [Concomitant]
     Dosage: 20 MG, WEEKLY (1/W)
     Dates: end: 20111027
  13. FORTEO [Suspect]
     Dosage: 20 UG, QD
     Dates: start: 20120107
  14. POTASSIUM CHLORIDE [Concomitant]
     Dosage: 20 MEQ, QD

REACTIONS (7)
  - BLOOD ALBUMIN ABNORMAL [None]
  - VENOUS INSUFFICIENCY [None]
  - NAIL DISORDER [None]
  - CEREBROVASCULAR ACCIDENT [None]
  - MYCOBACTERIAL INFECTION [None]
  - PAIN IN EXTREMITY [None]
  - OEDEMA PERIPHERAL [None]
